FAERS Safety Report 5109840-7 (Version None)
Quarter: 2006Q3

REPORT INFORMATION
  Report Type: 
  Country: None (occurrence: None)
  Receive Date: 20060918
  Receipt Date: 20060918
  Transmission Date: 20061208
  Serious: Yes (Other)
  Sender: FDA-Public Use
  Company Number: None

PATIENT
  Age: 36 Year
  Sex: Female
  Weight: 108.8633 kg

DRUGS (1)
  1. LEVAQUIN [Suspect]
     Indication: INFECTION PROPHYLAXIS
     Dosage: 750MG    1/DAY   PO
     Route: 048
     Dates: start: 20060912, end: 20060915

REACTIONS (3)
  - ARTHRALGIA [None]
  - INSOMNIA [None]
  - TINNITUS [None]
